FAERS Safety Report 25176191 (Version 1)
Quarter: 2025Q2

REPORT INFORMATION
  Report Type: Spontaneous
  Country: US (occurrence: US)
  Receive Date: 20250409
  Receipt Date: 20250409
  Transmission Date: 20250717
  Serious: Yes (Other)
  Sender: UNITED THERAPEUTICS
  Company Number: US-UNITED THERAPEUTICS-UNT-2025-011054

PATIENT
  Age: 84 Year
  Sex: Female

DRUGS (8)
  1. REMODULIN [Suspect]
     Active Substance: TREPROSTINIL
     Indication: Pulmonary hypertension
  2. SILDENAFIL [Suspect]
     Active Substance: SILDENAFIL
     Indication: Product used for unknown indication
  3. NITRIC OXIDE [Suspect]
     Active Substance: NITRIC OXIDE
     Indication: Product used for unknown indication
  4. DOBUTAMINE [Suspect]
     Active Substance: DOBUTAMINE HYDROCHLORIDE
     Indication: Right ventricular failure
  5. VASOPRESSIN [Suspect]
     Active Substance: VASOPRESSIN
     Indication: Vascular resistance systemic
  6. VASOPRESSIN [Suspect]
     Active Substance: VASOPRESSIN
     Indication: Right-to-left cardiac shunt
  7. VASOPRESSIN [Suspect]
     Active Substance: VASOPRESSIN
     Indication: Hypoxia
  8. VASOPRESSIN [Suspect]
     Active Substance: VASOPRESSIN
     Indication: Vascular resistance pulmonary

REACTIONS (2)
  - Right ventricular failure [Not Recovered/Not Resolved]
  - Therapy partial responder [Unknown]
